FAERS Safety Report 4738261-1 (Version None)
Quarter: 2005Q3

REPORT INFORMATION
  Report Type: 
  Country: None (occurrence: None)
  Receive Date: 20050803
  Receipt Date: 20050725
  Transmission Date: 20060218
  Serious: Yes (Hospitalization)
  Sender: FDA-Public Use
  Company Number: HQWYE240122MAR05

PATIENT
  Age: 53 Year
  Sex: Female

DRUGS (20)
  1. EFFEXOR XR [Suspect]
     Indication: BIPOLAR DISORDER
     Dosage: 150 MG 1X PER 1 DAY ORAL; 75 MG1X PER 1 DAY ORAL
     Route: 048
     Dates: end: 20050227
  2. EFFEXOR XR [Suspect]
     Indication: DEPRESSION
     Dosage: 150 MG 1X PER 1 DAY ORAL; 75 MG1X PER 1 DAY ORAL
     Route: 048
     Dates: end: 20050227
  3. EFFEXOR XR [Suspect]
     Indication: GENERALISED ANXIETY DISORDER
     Dosage: 150 MG 1X PER 1 DAY ORAL; 75 MG1X PER 1 DAY ORAL
     Route: 048
     Dates: end: 20050227
  4. EFFEXOR XR [Suspect]
     Indication: POST-TRAUMATIC STRESS DISORDER
     Dosage: 150 MG 1X PER 1 DAY ORAL; 75 MG1X PER 1 DAY ORAL
     Route: 048
     Dates: end: 20050227
  5. EFFEXOR XR [Suspect]
     Indication: BIPOLAR DISORDER
     Dosage: 150 MG 1X PER 1 DAY ORAL; 75 MG1X PER 1 DAY ORAL
     Route: 048
     Dates: start: 20050228, end: 20050301
  6. EFFEXOR XR [Suspect]
     Indication: DEPRESSION
     Dosage: 150 MG 1X PER 1 DAY ORAL; 75 MG1X PER 1 DAY ORAL
     Route: 048
     Dates: start: 20050228, end: 20050301
  7. EFFEXOR XR [Suspect]
     Indication: GENERALISED ANXIETY DISORDER
     Dosage: 150 MG 1X PER 1 DAY ORAL; 75 MG1X PER 1 DAY ORAL
     Route: 048
     Dates: start: 20050228, end: 20050301
  8. EFFEXOR XR [Suspect]
     Indication: POST-TRAUMATIC STRESS DISORDER
     Dosage: 150 MG 1X PER 1 DAY ORAL; 75 MG1X PER 1 DAY ORAL
     Route: 048
     Dates: start: 20050228, end: 20050301
  9. EFFEXOR [Suspect]
     Indication: BIPOLAR DISORDER
     Dosage: 37.5 MG 1X PER 1 DAY ORAL
     Route: 048
     Dates: start: 20050315, end: 20050101
  10. EFFEXOR [Suspect]
     Indication: GENERALISED ANXIETY DISORDER
     Dosage: 37.5 MG 1X PER 1 DAY ORAL
     Route: 048
     Dates: start: 20050315, end: 20050101
  11. EFFEXOR [Suspect]
     Indication: POST-TRAUMATIC STRESS DISORDER
     Dosage: 37.5 MG 1X PER 1 DAY ORAL
     Route: 048
     Dates: start: 20050315, end: 20050101
  12. SEROQUEL [Suspect]
     Dosage: 100 MG 1X PER 1 DAY ORAL
     Route: 048
  13. NEURONTIN [Concomitant]
  14. VALIUM [Concomitant]
  15. XANAX [Concomitant]
  16. RABEPRAZOLE SODIUM [Concomitant]
  17. ENALAPRIL MALEATE [Concomitant]
  18. DI-GESIC (DEXTROPROPOXYPHENE/PARACETAMOL) [Concomitant]
  19. MEPERIDINE HCL [Concomitant]
  20. VITAMINS (VITAMINS) [Concomitant]

REACTIONS (22)
  - AGITATION [None]
  - AMENORRHOEA [None]
  - BLOOD CHOLESTEROL INCREASED [None]
  - BRUXISM [None]
  - CANDIDIASIS [None]
  - CONDITION AGGRAVATED [None]
  - DERMATITIS EXFOLIATIVE [None]
  - DRUG DEPENDENCE [None]
  - DRUG WITHDRAWAL SYNDROME [None]
  - FLUSHING [None]
  - GALLBLADDER OPERATION [None]
  - HYPOMANIA [None]
  - MEMORY IMPAIRMENT [None]
  - MENOPAUSE [None]
  - POOR PERIPHERAL CIRCULATION [None]
  - PSORIASIS [None]
  - SKIN DISCOLOURATION [None]
  - SKIN EXFOLIATION [None]
  - SKIN HAEMORRHAGE [None]
  - SUICIDAL IDEATION [None]
  - TONGUE BITING [None]
  - TOOTH DISORDER [None]
